FAERS Safety Report 8284110-7 (Version None)
Quarter: 2012Q2

REPORT INFORMATION
  Report Type: 
  Country: None (occurrence: None)
  Receive Date: 20120413
  Receipt Date: 20111031
  Transmission Date: 20120825
  Serious: No
  Sender: FDA-Public Use
  Company Number: US-ASTRAZENECA-2011SE65767

PATIENT
  Age: 49 Year
  Sex: Female
  Weight: 126.1 kg

DRUGS (2)
  1. NASAL SPRAY [Concomitant]
  2. NEXIUM [Suspect]
     Indication: GASTROOESOPHAGEAL REFLUX DISEASE
     Route: 048
     Dates: start: 20111001

REACTIONS (1)
  - IRRITABLE BOWEL SYNDROME [None]
